FAERS Safety Report 5942511-3 (Version None)
Quarter: 2008Q4

REPORT INFORMATION
  Report Type: 
  Country: None (occurrence: None)
  Receive Date: 20081105
  Receipt Date: 20081024
  Transmission Date: 20090506
  Serious: Yes (Hospitalization)
  Sender: FDA-Public Use
  Company Number: GB-PFIZER INC-2008090598

PATIENT
  Age: 54 Year
  Sex: Male
  Weight: 70 kg

DRUGS (5)
  1. AZITHROMYCIN [Suspect]
     Indication: PROPHYLAXIS
     Route: 048
     Dates: start: 20080701, end: 20080808
  2. CIPROFLOXACIN [Suspect]
     Indication: PROPHYLAXIS
     Route: 048
     Dates: start: 20080701
  3. FLUOXETINE [Concomitant]
     Dosage: DAILY DOSE:20MG
     Dates: start: 20010101
  4. SERETIDE [Concomitant]
  5. THEOPHYLLINE [Concomitant]

REACTIONS (3)
  - CHROMATURIA [None]
  - FAECES PALE [None]
  - JAUNDICE [None]
